FAERS Safety Report 7771097-6 (Version None)
Quarter: 2011Q3

REPORT INFORMATION
  Report Type: 
  Country: None (occurrence: None)
  Receive Date: 20110922
  Receipt Date: 20110919
  Transmission Date: 20111222
  Serious: Yes (Other)
  Sender: FDA-Public Use
  Company Number: US-PFIZER INC-2011061648

PATIENT
  Sex: Female
  Weight: 88.4 kg

DRUGS (4)
  1. LYRICA [Suspect]
     Indication: NEUROPATHY PERIPHERAL
     Dosage: ONCE A DAY
     Route: 048
     Dates: start: 20110301, end: 20110301
  2. ZOLOFT [Concomitant]
     Indication: DEPRESSION
     Dosage: UNK
  3. WELLBUTRIN [Concomitant]
     Indication: DEPRESSION
     Dosage: UNK
  4. CYMBALTA [Concomitant]
     Indication: NEUROPATHY PERIPHERAL
     Dosage: UNK

REACTIONS (19)
  - BLINDNESS UNILATERAL [None]
  - COGNITIVE DISORDER [None]
  - HYPOAESTHESIA [None]
  - BLOOD SODIUM DECREASED [None]
  - DISTURBANCE IN ATTENTION [None]
  - FALL [None]
  - ACTIVITIES OF DAILY LIVING IMPAIRED [None]
  - CONFUSIONAL STATE [None]
  - FEAR [None]
  - FATIGUE [None]
  - MOTOR DYSFUNCTION [None]
  - SWOLLEN TONGUE [None]
  - ASTHENIA [None]
  - DIZZINESS [None]
  - DIPLOPIA [None]
  - VISION BLURRED [None]
  - ABASIA [None]
  - SPEECH DISORDER [None]
  - READING DISORDER [None]
